FAERS Safety Report 9643144 (Version 1)
Quarter: 2013Q4

REPORT INFORMATION
  Report Type: Spontaneous
  Country: US (occurrence: US)
  Receive Date: 20131024
  Receipt Date: 20131024
  Transmission Date: 20140711
  Serious: Yes (Hospitalization, Other)
  Sender: FDA-Public Use
  Company Number: US-PFIZER INC-2013300957

PATIENT
  Age: 34 Year
  Sex: Male

DRUGS (2)
  1. DOXAZOSIN MESILATE [Suspect]
     Dosage: OVER 100 TABLETS OF 4 MG
     Route: 048
  2. PROPRANOLOL [Suspect]
     Dosage: OVER 100 TABLETS OF 10 MG
     Route: 048

REACTIONS (1)
  - Circulatory collapse [Recovering/Resolving]
